FAERS Safety Report 7235757-8 (Version None)
Quarter: 2011Q1

REPORT INFORMATION
  Report Type: 
  Country: None (occurrence: None)
  Receive Date: 20110111
  Receipt Date: 20110104
  Transmission Date: 20110831
  Serious: Yes (Life-Threatening, Hospitalization)
  Sender: FDA-Public Use
  Company Number: VISP-GE-1101S-0001

PATIENT
  Age: 82 Year
  Sex: Female
  Weight: 68 kg

DRUGS (5)
  1. BISOPROLOL [Concomitant]
  2. ACETYLSALICYLIC ACID SRT [Concomitant]
  3. RAMIPRIL [Concomitant]
  4. LASIX [Concomitant]
  5. VISIPAQUE [Suspect]
     Indication: CORONARY ARTERY DISEASE
     Dosage: 150 ML,  SINGLE DOSE, CORONARY
     Dates: start: 20101221, end: 20101221

REACTIONS (4)
  - ACUTE CORONARY SYNDROME [None]
  - BLOOD PRESSURE DECREASED [None]
  - CARDIOVASCULAR INSUFFICIENCY [None]
  - CARDIAC ARREST [None]
